FAERS Safety Report 15052283 (Version 1)
Quarter: 2018Q2

REPORT INFORMATION
  Report Type: Spontaneous
  Country: US (occurrence: US)
  Receive Date: 20180601
  Receipt Date: 20180601
  Transmission Date: 20180711
  Serious: Yes (Hospitalization)
  Sender: FDA-Public Use
  Company Number: None

PATIENT
  Age: 68 Year
  Sex: Male

DRUGS (19)
  1. CALCIUM [Concomitant]
     Active Substance: CALCIUM
  2. ENALAPRIL [Concomitant]
     Active Substance: ENALAPRIL
  3. MEVACOR [Concomitant]
     Active Substance: LOVASTATIN
  4. CALTRATE [Concomitant]
     Active Substance: CALCIUM CARBONATE
  5. CLONIDINE. [Concomitant]
     Active Substance: CLONIDINE
  6. COREG [Concomitant]
     Active Substance: CARVEDILOL
  7. DILTIAZEM. [Concomitant]
     Active Substance: DILTIAZEM
  8. DOXAZOSIN [Concomitant]
     Active Substance: DOXAZOSIN\DOXAZOSIN MESYLATE
  9. CARVEDILOL. [Concomitant]
     Active Substance: CARVEDILOL
  10. FOLIC ACID. [Concomitant]
     Active Substance: FOLIC ACID
  11. METHOTREXATE. [Concomitant]
     Active Substance: METHOTREXATE
  12. CARDIZEM CD [Concomitant]
     Active Substance: DILTIAZEM HYDROCHLORIDE
  13. CIALIS [Concomitant]
     Active Substance: TADALAFIL
  14. LOVASTATIN. [Concomitant]
     Active Substance: LOVASTATIN
  15. BD SHARPS [Concomitant]
  16. CARTIA XT [Concomitant]
     Active Substance: DILTIAZEM HYDROCHLORIDE
  17. LANSOPRAZOLE. [Concomitant]
     Active Substance: LANSOPRAZOLE
  18. NITROGLYCER [Concomitant]
  19. HUMIRA [Suspect]
     Active Substance: ADALIMUMAB
     Indication: RHEUMATOID ARTHRITIS
     Route: 058
     Dates: start: 20070402

REACTIONS (2)
  - Drug dose omission [None]
  - Surgery [None]
